FAERS Safety Report 19551288 (Version 1)
Quarter: 2021Q3

REPORT INFORMATION
  Report Type: Spontaneous
  Country: BE (occurrence: BE)
  Receive Date: 20210715
  Receipt Date: 20210715
  Transmission Date: 20211014
  Serious: Yes (Life-Threatening, Hospitalization, Other)
  Sender: FDA-Public Use
  Company Number: BE-AUROBINDO-AUR-APL-2021-029916

PATIENT
  Age: 25 Year
  Sex: Female

DRUGS (4)
  1. TRAMADOL. [Suspect]
     Active Substance: TRAMADOL
     Indication: PAIN
     Dosage: 100 MILLIGRAM
     Route: 048
  2. OXYCODONE [Suspect]
     Active Substance: OXYCODONE
     Indication: PAIN
     Route: 048
  3. PARACETAMOL [Suspect]
     Active Substance: ACETAMINOPHEN
     Indication: PAIN
     Dosage: UNK
     Route: 065
  4. PIRITRAMIDE [Suspect]
     Active Substance: PIRITRAMIDE
     Indication: PAIN
     Dosage: 20 MILLIGRAM
     Route: 042

REACTIONS (5)
  - Coma [Recovered/Resolved]
  - Congenital central hypoventilation syndrome [Recovering/Resolving]
  - Pneumonia aspiration [Recovering/Resolving]
  - Hypercapnia [Recovering/Resolving]
  - Respiratory failure [Recovering/Resolving]
